FAERS Safety Report 6542280-2 (Version None)
Quarter: 2010Q1

REPORT INFORMATION
  Report Type: 
  Country: None (occurrence: None)
  Receive Date: 20100114
  Receipt Date: 20100114
  Transmission Date: 20100710
  Serious: Yes (Hospitalization)
  Sender: FDA-Public Use
  Company Number: None

PATIENT
  Age: 53 Year
  Sex: Female
  Weight: 78.9259 kg

DRUGS (1)
  1. XOLAIR [Suspect]

REACTIONS (1)
  - ANAPHYLACTIC REACTION [None]
